FAERS Safety Report 23329943 (Version 1)
Quarter: 2023Q4

REPORT INFORMATION
  Report Type: Spontaneous
  Country: US (occurrence: US)
  Receive Date: 20231222
  Receipt Date: 20231222
  Transmission Date: 20240109
  Serious: No
  Sender: FDA-Public Use
  Company Number: US-SA-SAC20231218001474

PATIENT
  Sex: Female

DRUGS (13)
  1. KEVZARA [Suspect]
     Active Substance: SARILUMAB
     Indication: Rheumatoid arthritis
     Dosage: 200 MG, QOW
     Route: 058
  2. MELOXICAM [Concomitant]
     Active Substance: MELOXICAM
     Dosage: UNK
  3. TIZANIDINE HYDROCHLORIDE [Concomitant]
     Active Substance: TIZANIDINE HYDROCHLORIDE
     Dosage: UNK
  4. ALBUTEROL [Concomitant]
     Active Substance: ALBUTEROL
     Dosage: UNK
  5. BACLOFEN [Concomitant]
     Active Substance: BACLOFEN
     Dosage: UNK
  6. BUDESONIDE [Concomitant]
     Active Substance: BUDESONIDE
     Dosage: UNK
  7. COLCHICINE [Concomitant]
     Active Substance: COLCHICINE
     Dosage: UNK
  8. DULCOLAX-S [Concomitant]
     Dosage: UNK
  9. HYDROCODONE [Concomitant]
     Active Substance: HYDROCODONE
     Dosage: UNK
  10. KETOROLAC [Concomitant]
     Active Substance: KETOROLAC TROMETHAMINE
     Dosage: UNK
  11. PREDNISOLONE [Concomitant]
     Active Substance: PREDNISOLONE
     Dosage: UNK
  12. METHOCARBAMOL [Concomitant]
     Active Substance: METHOCARBAMOL
     Dosage: UNK
  13. POTASSIUM CHLORIDE [Concomitant]
     Active Substance: POTASSIUM CHLORIDE
     Dosage: UNK

REACTIONS (6)
  - Injection site swelling [Not Recovered/Not Resolved]
  - Injection site nodule [Not Recovered/Not Resolved]
  - Injection site rash [Not Recovered/Not Resolved]
  - Chest pain [Not Recovered/Not Resolved]
  - Regurgitation [Not Recovered/Not Resolved]
  - Influenza [Not Recovered/Not Resolved]
